FAERS Safety Report 5034037-9 (Version None)
Quarter: 2006Q2

REPORT INFORMATION
  Report Type: 
  Country: None (occurrence: None)
  Receive Date: 20060626
  Receipt Date: 20060614
  Transmission Date: 20061013
  Serious: Yes (Congenital Anomaly)
  Sender: FDA-Public Use
  Company Number: US-JNJFOC-20060603261

PATIENT
  Sex: Male
  Weight: 2.95 kg

DRUGS (5)
  1. TOPAMAX [Suspect]
     Indication: DRUG EXPOSURE DURING PREGNANCY
  2. KLONOPIN [Suspect]
     Indication: DRUG EXPOSURE DURING PREGNANCY
  3. KLOR-CON [Concomitant]
     Indication: DRUG EXPOSURE DURING PREGNANCY
  4. REMERON [Concomitant]
     Indication: DRUG EXPOSURE DURING PREGNANCY
  5. SYNTHROID [Concomitant]
     Indication: DRUG EXPOSURE DURING PREGNANCY

REACTIONS (4)
  - CLEFT LIP [None]
  - CLEFT PALATE [None]
  - DRUG EXPOSURE DURING PREGNANCY [None]
  - FOETAL TOBACCO EXPOSURE [None]
